FAERS Safety Report 11103819 (Version 6)
Quarter: 2017Q4

REPORT INFORMATION
  Report Type: Spontaneous
  Country: US (occurrence: US)
  Receive Date: 20150511
  Receipt Date: 20171211
  Transmission Date: 20180320
  Serious: No
  Sender: FDA-Public Use
  Company Number: US-PFIZER INC-2015159653

PATIENT
  Age: 53 Year
  Sex: Male
  Weight: 71.66 kg

DRUGS (3)
  1. NICOTROL [Suspect]
     Active Substance: NICOTINE
     Dosage: EVERY 20 MINUTES; 3 TIMES AN HOUR)
  2. NICOTROL [Suspect]
     Active Substance: NICOTINE
     Dosage: 1 MG, UNK (ONE DOSE IS 1 MG OF NICOTINE (2 SPRAYS, ONE IN EACH NOSTRIL)]
     Route: 045
  3. NICOTROL [Suspect]
     Active Substance: NICOTINE
     Indication: SMOKING CESSATION THERAPY
     Dosage: UNK  (1-2 DOSES EVERY HOUR)

REACTIONS (4)
  - Memory impairment [Unknown]
  - Irritability [Unknown]
  - Intentional product misuse [Unknown]
  - Disturbance in attention [Unknown]
